FAERS Safety Report 10361284 (Version 3)
Quarter: 2014Q4

REPORT INFORMATION
  Report Type: Report from Study
  Country: US (occurrence: US)
  Receive Date: 20140804
  Receipt Date: 20141110
  Transmission Date: 20150528
  Serious: Yes (Other)
  Sender: FDA-Public Use
  Company Number: US-SA-2014SA100846

PATIENT
  Age: 71 Year
  Sex: Male

DRUGS (1)
  1. LANTUS [Suspect]
     Active Substance: INSULIN GLARGINE
     Indication: PRODUCT USED FOR UNKNOWN INDICATION
     Route: 065
     Dates: end: 201405

REACTIONS (5)
  - Urinary tract infection [Unknown]
  - Prostatic operation [Unknown]
  - Gastrointestinal infection [Unknown]
  - Limb operation [Unknown]
  - Kidney infection [Unknown]

NARRATIVE: CASE EVENT DATE: 201405
